FAERS Safety Report 9617668 (Version 1)
Quarter: 2013Q4

REPORT INFORMATION
  Report Type: Spontaneous
  Country: GB (occurrence: GB)
  Receive Date: 20131011
  Receipt Date: 20131011
  Transmission Date: 20140711
  Serious: Yes (Disabling, Other)
  Sender: FDA-Public Use
  Company Number: GB-ELI_LILLY_AND_COMPANY-GB201310001515

PATIENT
  Age: 57 Year
  Sex: Male

DRUGS (7)
  1. CIALIS [Suspect]
     Indication: ERECTILE DYSFUNCTION
     Dosage: 10 MG, PRN
     Route: 048
  2. PARACETAMOL [Concomitant]
     Dosage: 1 DF, UNKNOWN
  3. CITALOPRAM [Concomitant]
     Dosage: 20 DF, UNKNOWN
  4. CLOPIDOGREL [Concomitant]
     Dosage: 75 DF, UNKNOWN
  5. AMLODIPINE [Concomitant]
     Dosage: 5 DF, UNKNOWN
  6. ATORVASTATIN [Concomitant]
     Dosage: 40 DF, UNKNOWN
  7. BISOPROLOL [Concomitant]
     Dosage: 5 DF, UNKNOWN

REACTIONS (3)
  - Hemiplegia [Unknown]
  - Convulsion [Recovered/Resolved]
  - Cerebrovascular accident [Unknown]
